FAERS Safety Report 8710942 (Version 2)
Quarter: 2012Q4

REPORT INFORMATION
  Report Type: Report from Study
  Country: JP (occurrence: JP)
  Receive Date: 20120807
  Receipt Date: 20120911
  Transmission Date: 20130627
  Serious: Yes (Hospitalization)
  Sender: FDA-Public Use
  Company Number: JP-009507513-1207JPN000645

PATIENT

DRUGS (13)
  1. PEGINTRON [Suspect]
     Indication: HEPATITIS C
     Dosage: 1.5mcg/kg
     Route: 058
     Dates: start: 20120515, end: 20120624
  2. PEGINTRON [Suspect]
     Dosage: 100 mcg/week
     Route: 058
     Dates: start: 20120605, end: 20120625
  3. REBETOL [Suspect]
     Indication: HEPATITIS C
     Dosage: 1000 mg, qd
     Route: 048
     Dates: start: 20120515, end: 20120624
  4. REBETOL [Suspect]
     Dosage: 1000 mg, Once
     Route: 048
     Dates: start: 20120515, end: 20120618
  5. REBETOL [Suspect]
     Dosage: 800 mg, Once
     Route: 048
     Dates: start: 20120619, end: 20120626
  6. TELAVIC [Suspect]
     Indication: HEPATITIS C
     Dosage: 2250 mg, qd
     Route: 048
     Dates: start: 20120515, end: 20120624
  7. BLOPRESS [Concomitant]
     Route: 048
     Dates: start: 20091110
  8. GASMOTIN [Concomitant]
     Dosage: 15 mg, Once
     Route: 048
     Dates: start: 20120529
  9. ALOSITOL [Concomitant]
     Dosage: 200 mg, Once
     Route: 048
     Dates: start: 20120529, end: 20120724
  10. TAKEPRON [Concomitant]
     Indication: PROPHYLAXIS
     Dosage: 15 mg, Once
     Route: 048
     Dates: start: 20120625
  11. PREDONINE [Concomitant]
     Dosage: 40 mg, Once
     Route: 048
     Dates: start: 20120625
  12. ALLEGRA [Concomitant]
     Dosage: 120 mg, Once
     Route: 048
     Dates: start: 20120626
  13. DAIPHEN [Concomitant]
     Dosage: 1 DF, Once
     Route: 048
     Dates: start: 20120709

REACTIONS (4)
  - Erythema multiforme [Recovered/Resolved]
  - Pruritus [None]
  - Pyrexia [None]
  - Eosinophil count increased [None]
